FAERS Safety Report 20102002 (Version 1)
Quarter: 2021Q4

REPORT INFORMATION
  Report Type: Spontaneous
  Country: ES (occurrence: ES)
  Receive Date: 20211123
  Receipt Date: 20211123
  Transmission Date: 20220303
  Serious: Yes (Other)
  Sender: FDA-Public Use
  Company Number: None

PATIENT
  Age: 77 Year
  Sex: Female

DRUGS (2)
  1. AMOXICILLIN\CLAVULANIC ACID [Suspect]
     Active Substance: AMOXICILLIN\CLAVULANIC ACID
     Indication: Cellulitis
     Dosage: 3 DOSAGE FORMS DAILY; 1-1-1 , STRENGTH : 875 MG / 125 MG
     Route: 048
     Dates: start: 20210405, end: 20210410
  2. CLOXACILLIN [Suspect]
     Active Substance: CLOXACILLIN
     Indication: Cellulitis
     Dosage: 1500 MILLIGRAM DAILY; 1-1-1
     Route: 048
     Dates: start: 20210330, end: 20210405

REACTIONS (3)
  - Hepatitis [Recovered/Resolved]
  - Rash maculo-papular [Recovered/Resolved]
  - Drug reaction with eosinophilia and systemic symptoms [Recovered/Resolved]

NARRATIVE: CASE EVENT DATE: 20210409
